FAERS Safety Report 24289216 (Version 2)
Quarter: 2024Q4

REPORT INFORMATION
  Report Type: Spontaneous
  Country: PT (occurrence: PT)
  Receive Date: 20240906
  Receipt Date: 20241005
  Transmission Date: 20250115
  Serious: Yes (Death, Hospitalization, Other)
  Sender: ACCORD
  Company Number: PT-Accord-444500

PATIENT
  Age: 85 Year
  Sex: Female

DRUGS (3)
  1. METHOTREXATE [Suspect]
     Active Substance: METHOTREXATE
     Indication: Pemphigoid
  2. LOSARTAN [Concomitant]
     Active Substance: LOSARTAN
     Indication: Hypertension
  3. HYDROCHLOROTHIAZIDE [Concomitant]
     Active Substance: HYDROCHLOROTHIAZIDE
     Indication: Hypertension

REACTIONS (9)
  - Toxic epidermal necrolysis [Fatal]
  - Enterococcal sepsis [Fatal]
  - Acute kidney injury [Unknown]
  - Toxicity to various agents [Fatal]
  - Folate deficiency [Unknown]
  - Pancytopenia [Unknown]
  - Neutropenia [Unknown]
  - Rhabdomyolysis [Unknown]
  - Off label use [Unknown]
